FAERS Safety Report 7395589-7 (Version None)
Quarter: 2011Q2

REPORT INFORMATION
  Report Type: 
  Country: None (occurrence: None)
  Receive Date: 20110405
  Receipt Date: 20110309
  Transmission Date: 20111010
  Serious: No
  Sender: FDA-Public Use
  Company Number: US-B.I. PHARMACEUTICALS,INC./RIDGEFIELD-2011-BP-07506BP

PATIENT
  Age: 60 Year
  Sex: Male

DRUGS (7)
  1. NITROGLYCERIDE [Concomitant]
     Indication: CHEST PAIN
  2. METOPROLOL TARTRATE [Concomitant]
     Indication: ATRIAL FIBRILLATION
     Dosage: 400 MG
  3. TAZPIA XT [Concomitant]
     Indication: CHEST PAIN
     Dosage: 360 MG
  4. ISOSORBIDE DINITRATE [Concomitant]
     Indication: CHEST PAIN
  5. PANTOPRAZOLE [Concomitant]
     Dosage: 40 MG
  6. PRADAXA [Suspect]
     Indication: ATRIAL FIBRILLATION
     Dosage: 150 MG
     Route: 048
     Dates: start: 20110304
  7. IRON [Concomitant]
     Indication: ANAEMIA
     Dosage: 8 MG

REACTIONS (5)
  - OROPHARYNGEAL PAIN [None]
  - HEARING IMPAIRED [None]
  - VISUAL IMPAIRMENT [None]
  - ASTHENIA [None]
  - DIZZINESS [None]
